FAERS Safety Report 7418359-X (Version None)
Quarter: 2011Q2

REPORT INFORMATION
  Report Type: 
  Country: None (occurrence: None)
  Receive Date: 20110415
  Receipt Date: 20110404
  Transmission Date: 20111010
  Serious: Yes (Other)
  Sender: FDA-Public Use
  Company Number: B0686211A

PATIENT
  Sex: Female
  Weight: 60 kg

DRUGS (5)
  1. COMBIVIR [Suspect]
     Indication: HIV INFECTION
     Dosage: 1TAB TWICE PER DAY
     Route: 065
     Dates: start: 20100907, end: 20101021
  2. KALETRA [Suspect]
     Indication: HIV INFECTION
     Dosage: 2TAB TWICE PER DAY
     Route: 048
     Dates: start: 20100907, end: 20101021
  3. INTERFERON [Concomitant]
  4. BUDESONIDE [Concomitant]
     Dates: start: 20110310
  5. RIBAVIRIN [Concomitant]
     Dates: start: 20110310

REACTIONS (4)
  - LIVER FUNCTION TEST ABNORMAL [None]
  - JAUNDICE [None]
  - HEPATOTOXICITY [None]
  - DRUG EXPOSURE DURING PREGNANCY [None]
